FAERS Safety Report 4503906-8 (Version None)
Quarter: 2004Q4

REPORT INFORMATION
  Report Type: 
  Country: None (occurrence: None)
  Receive Date: 20041115
  Receipt Date: 20041103
  Transmission Date: 20050328
  Serious: Yes (Disabling, Other)
  Sender: FDA-Public Use
  Company Number: 2004089240

PATIENT
  Age: 60 Year
  Sex: Male
  Weight: 167.8309 kg

DRUGS (10)
  1. LIPITOR [Suspect]
     Indication: BLOOD CHOLESTEROL
     Dosage: 20 MG (20 MG, 1 IN 1 D), ORAL
     Route: 048
     Dates: start: 20030101, end: 20041102
  2. POTASSIUM (POTASSIUM) [Concomitant]
  3. METFORMIN HCL [Concomitant]
  4. ALLOPURINOL [Concomitant]
  5. FLECAINIDE ACETATE [Concomitant]
  6. GLIPIZIDE [Concomitant]
  7. PIOGLITAZONE HCL [Concomitant]
  8. FUROSEMIDE [Concomitant]
  9. ATENOLOL [Concomitant]
  10. BENAZEPRIL HCL [Concomitant]

REACTIONS (4)
  - ABASIA [None]
  - BACK INJURY [None]
  - DYSSTASIA [None]
  - MUSCULAR WEAKNESS [None]
